FAERS Safety Report 19924610 (Version 2)
Quarter: 2021Q4

REPORT INFORMATION
  Report Type: Spontaneous
  Country: US (occurrence: US)
  Receive Date: 20211006
  Receipt Date: 20211027
  Transmission Date: 20220304
  Serious: Yes (Hospitalization, Other)
  Sender: FDA-Public Use
  Company Number: US-R-PHARM US LLC-2021RPM00012

PATIENT
  Age: 45 Year
  Sex: Female
  Weight: 58.05 kg

DRUGS (4)
  1. IXEMPRA [Suspect]
     Active Substance: IXABEPILONE
     Indication: Ovarian cancer recurrent
     Dosage: 25 MG ON DAYS 1, 8, 15 EVERY 28 DAYS
     Route: 041
     Dates: start: 20210723, end: 20210806
  2. IXEMPRA [Suspect]
     Active Substance: IXABEPILONE
     Indication: Ovarian cancer metastatic
     Dosage: 23.7 MG ON DAYS 1, 8, AND 15 EVERY 28 DAYS
     Route: 041
     Dates: start: 20210819, end: 20210819
  3. IXEMPRA [Suspect]
     Active Substance: IXABEPILONE
     Indication: Ovarian cancer stage III
  4. AVASTIN [Suspect]
     Active Substance: BEVACIZUMAB
     Indication: Ovarian cancer stage III
     Dosage: UNK
     Dates: start: 20210723, end: 20210819

REACTIONS (24)
  - Ovarian cancer metastatic [Not Recovered/Not Resolved]
  - Retroperitoneal abscess [Unknown]
  - Intestinal perforation [Unknown]
  - Wound [Unknown]
  - Urinary retention [Unknown]
  - Malnutrition [Unknown]
  - Pancreatitis [Unknown]
  - Bacterial sepsis [Unknown]
  - Escherichia infection [Unknown]
  - Enterococcal infection [Unknown]
  - Bacteroides infection [Unknown]
  - Leukopenia [Unknown]
  - Deep vein thrombosis [Unknown]
  - Drug ineffective for unapproved indication [Recovered/Resolved]
  - Bandaemia [Unknown]
  - Hyperlipasaemia [Unknown]
  - Thrombocytosis [Unknown]
  - Hypomagnesaemia [Recovered/Resolved]
  - Hypophosphataemia [Recovered/Resolved]
  - Hypocalcaemia [Recovered/Resolved]
  - Normochromic normocytic anaemia [Unknown]
  - Hyponatraemia [Recovered/Resolved]
  - Asthenia [Not Recovered/Not Resolved]
  - Pain [Not Recovered/Not Resolved]

NARRATIVE: CASE EVENT DATE: 20210101
